FAERS Safety Report 17718490 (Version 1)
Quarter: 2020Q2

REPORT INFORMATION
  Report Type: Spontaneous
  Country: US (occurrence: US)
  Receive Date: 20200428
  Receipt Date: 20200428
  Transmission Date: 20200714
  Serious: No
  Sender: FDA-Public Use
  Company Number: US-009507513-2004USA005188

PATIENT
  Age: 39 Year
  Sex: Female

DRUGS (2)
  1. STERILE DILUENT (WATER) [Suspect]
     Active Substance: WATER
     Dosage: 1 DOSAGE FORM
     Dates: start: 20200303
  2. VARIVAX [Suspect]
     Active Substance: VARICELLA-ZOSTER VIRUS STRAIN OKA/MERCK LIVE ANTIGEN
     Indication: PROPHYLAXIS
     Dosage: 1 DOSAGE FORM
     Route: 058
     Dates: start: 20200303

REACTIONS (1)
  - Exposure during pregnancy [Unknown]

NARRATIVE: CASE EVENT DATE: 20200303
